FAERS Safety Report 7292479-5 (Version None)
Quarter: 2011Q1

REPORT INFORMATION
  Report Type: 
  Country: None (occurrence: None)
  Receive Date: 20110215
  Receipt Date: 20110210
  Transmission Date: 20110831
  Serious: No
  Sender: FDA-Public Use
  Company Number: US-PFIZER INC-2011014070

PATIENT
  Age: 5 Year
  Sex: Female
  Weight: 16.8 kg

DRUGS (3)
  1. CHILDREN'S ADVIL [Suspect]
     Indication: PYREXIA
     Dosage: 1.5 TSP EVERY 6HRS
     Route: 048
     Dates: start: 20110114, end: 20110115
  2. CHILDREN'S ADVIL [Suspect]
     Indication: VIRAL INFECTION
  3. CHILDREN'S ADVIL [Suspect]
     Indication: NASOPHARYNGITIS

REACTIONS (1)
  - DRUG INEFFECTIVE [None]
